FAERS Safety Report 4958253-7 (Version None)
Quarter: 2006Q1

REPORT INFORMATION
  Report Type: 
  Country: None (occurrence: None)
  Receive Date: 20060330
  Receipt Date: 20060320
  Transmission Date: 20060701
  Serious: Yes (Other)
  Sender: FDA-Public Use
  Company Number: 2006004952

PATIENT
  Age: 42 Year
  Sex: Male
  Weight: 70 kg

DRUGS (2)
  1. TRIZIVIR [Suspect]
     Dosage: 15TAB SINGLE DOSE
     Route: 048
     Dates: start: 20060320, end: 20060320
  2. VIRAMUNE [Suspect]
     Dosage: 5TAB SINGLE DOSE
     Route: 048
     Dates: start: 20060320, end: 20060320

REACTIONS (3)
  - NAUSEA [None]
  - OVERDOSE [None]
  - SUICIDE ATTEMPT [None]
